FAERS Safety Report 6019915-6 (Version None)
Quarter: 2008Q4

REPORT INFORMATION
  Report Type: 
  Country: None (occurrence: None)
  Receive Date: 20081223
  Receipt Date: 20081208
  Transmission Date: 20090506
  Serious: Yes (Hospitalization)
  Sender: FDA-Public Use
  Company Number: KV200801027

PATIENT
  Age: 67 Year
  Sex: Male
  Weight: 115.2 kg

DRUGS (10)
  1. ISOSORBIDE MONONITRATE [Suspect]
     Indication: CARDIAC DISORDER
     Dosage: 60 MG, QD, ORAL
     Route: 048
  2. SYNTHROID [Concomitant]
  3. GLUCOPHAGE /00082701/ (METFORMIN) [Concomitant]
  4. LASIX [Concomitant]
  5. QUINAPRIL HCL [Concomitant]
  6. POTASSIUM CHLORIDE [Concomitant]
  7. COUMADIN [Concomitant]
  8. ZOCOR [Concomitant]
  9. HUMALOG /00030501/ (INSULIN) [Concomitant]
  10. TENORMIN [Concomitant]

REACTIONS (2)
  - ARRHYTHMIA [None]
  - PRODUCT QUALITY ISSUE [None]
